FAERS Safety Report 6582559-1 (Version None)
Quarter: 2010Q1

REPORT INFORMATION
  Report Type: 
  Country: None (occurrence: None)
  Receive Date: 20100212
  Receipt Date: 20100212
  Transmission Date: 20100710
  Serious: No
  Sender: FDA-Public Use
  Company Number: None

PATIENT
  Age: 26 Year
  Sex: Male
  Weight: 116.12 kg

DRUGS (1)
  1. BUPROPION HCL [Suspect]
     Indication: SMOKING CESSATION THERAPY
     Dosage: 150 MG BID PO
     Route: 048
     Dates: start: 20090914, end: 20090930

REACTIONS (5)
  - ANGIOEDEMA [None]
  - ARTHRALGIA [None]
  - CHILLS [None]
  - PYREXIA [None]
  - URTICARIA [None]
